FAERS Safety Report 8734493 (Version 2)
Quarter: 2015Q2

REPORT INFORMATION
  Report Type: Report from Study
  Country: US (occurrence: US)
  Receive Date: 20120821
  Receipt Date: 20150409
  Transmission Date: 20150821
  Serious: Yes (Other)
  Sender: FDA-Public Use
  Company Number: US-ROCHE-1098855

PATIENT
  Age: 58 Year
  Sex: Male

DRUGS (13)
  1. NITROGLYCERINE [Concomitant]
     Active Substance: NITROGLYCERIN
     Dosage: PATCH
     Route: 065
  2. LIDOCAINE. [Concomitant]
     Active Substance: LIDOCAINE
  3. FLAGYL [Concomitant]
     Active Substance: METRONIDAZOLE\METRONIDAZOLE HYDROCHLORIDE
     Route: 048
  4. PERSANTINE [Concomitant]
     Active Substance: DIPYRIDAMOLE
     Route: 065
  5. VANCOMYCIN [Concomitant]
     Active Substance: VANCOMYCIN
  6. ACTIVASE [Suspect]
     Active Substance: ALTEPLASE
     Indication: VASCULAR OPERATION
     Route: 042
  7. DARVOCET [Concomitant]
     Active Substance: ACETAMINOPHEN\PROPOXYPHENE HYDROCHLORIDE
     Dosage: AS NEEDED
     Route: 065
  8. XYLOCAINE [Concomitant]
     Active Substance: LIDOCAINE HYDROCHLORIDE
     Route: 065
  9. CLINDAMYCIN [Concomitant]
     Active Substance: CLINDAMYCIN\CLINDAMYCIN PHOSPHATE
  10. HEPARIN [Concomitant]
     Active Substance: HEPARIN SODIUM
  11. CIPROFLOXACIN. [Concomitant]
     Active Substance: CIPROFLOXACIN
     Route: 048
  12. TOBRAMYCIN. [Concomitant]
     Active Substance: TOBRAMYCIN
  13. CEFETAMET [Concomitant]

REACTIONS (31)
  - Myocardial infarction [Unknown]
  - Upper respiratory tract infection [Unknown]
  - Rhonchi [Unknown]
  - Weight decreased [Unknown]
  - Breath sounds abnormal [Unknown]
  - Musculoskeletal chest pain [Unknown]
  - Sputum increased [Unknown]
  - Pyrexia [Unknown]
  - Fatigue [Unknown]
  - Left ventricular dysfunction [Unknown]
  - Bronchial secretion retention [Unknown]
  - Oedema peripheral [Unknown]
  - Dizziness [Unknown]
  - Atelectasis [Unknown]
  - Decreased appetite [Unknown]
  - Ventricular dyskinesia [Unknown]
  - Emphysema [Unknown]
  - Pneumonia [Unknown]
  - Weaning failure [Unknown]
  - Tachycardia [Unknown]
  - Ventricular hypokinesia [Unknown]
  - Dyspnoea [Unknown]
  - Localised oedema [Unknown]
  - Musculoskeletal pain [Unknown]
  - Pneumothorax [Unknown]
  - Anxiety [Unknown]
  - Ill-defined disorder [Unknown]
  - Cough [Unknown]
  - Incision site pain [Unknown]
  - Pulmonary air leakage [Unknown]
  - Extrasystoles [Unknown]

NARRATIVE: CASE EVENT DATE: 19880809
